FAERS Safety Report 18054282 (Version 8)
Quarter: 2022Q1

REPORT INFORMATION
  Report Type: Spontaneous
  Country: JP (occurrence: JP)
  Receive Date: 20200722
  Receipt Date: 20220130
  Transmission Date: 20220423
  Serious: Yes (Death, Life-Threatening, Other)
  Sender: FDA-Public Use
  Company Number: JP-JAZZ-2020-JP-009071

PATIENT
  Age: 57 Year
  Sex: Male
  Weight: 66 kg

DRUGS (2)
  1. DEFITELIO [Suspect]
     Active Substance: DEFIBROTIDE SODIUM
     Indication: Venoocclusive liver disease
     Dosage: 375 MILLIGRAM, QID
     Route: 042
     Dates: start: 20200707, end: 20200712
  2. DEFITELIO [Suspect]
     Active Substance: DEFIBROTIDE SODIUM
     Dosage: 375 MILLIGRAM, QID
     Route: 042
     Dates: start: 20200713, end: 20200716

REACTIONS (3)
  - Haemoptysis [Recovered/Resolved]
  - Venoocclusive disease [Fatal]
  - Off label use [Unknown]

NARRATIVE: CASE EVENT DATE: 20200707
